FAERS Safety Report 16275845 (Version 1)
Quarter: 2019Q2

REPORT INFORMATION
  Report Type: Report from Study
  Country: US (occurrence: US)
  Receive Date: 20190505
  Receipt Date: 20190505
  Transmission Date: 20190711
  Serious: No
  Sender: FDA-Public Use
  Company Number: PHEH2019US018431

PATIENT
  Sex: Female

DRUGS (2)
  1. TAFINLAR [Suspect]
     Active Substance: DABRAFENIB MESYLATE
     Dosage: 75 MG, BID
     Route: 048
  2. TAFINLAR [Suspect]
     Active Substance: DABRAFENIB MESYLATE
     Indication: LUNG NEOPLASM MALIGNANT
     Dosage: 150 MG, BID
     Route: 048

REACTIONS (1)
  - Pyrexia [Unknown]
